FAERS Safety Report 4466031-0 (Version None)
Quarter: 2004Q3

REPORT INFORMATION
  Report Type: 
  Country: None (occurrence: None)
  Receive Date: 20040930
  Receipt Date: 20040930
  Transmission Date: 20050211
  Serious: Yes (Other)
  Sender: FDA-Public Use
  Company Number: None

PATIENT
  Sex: Female
  Weight: 58.9676 kg

DRUGS (2)
  1. EFFEXOR XR [Suspect]
     Indication: DEPRESSION
     Dosage: 1 CAPSUL  PER DAY  ORAL
     Route: 048
     Dates: start: 20030823, end: 20040926
  2. EFFEXOR XR [Suspect]
     Indication: FAMILY STRESS
     Dosage: 1 CAPSUL  PER DAY  ORAL
     Route: 048
     Dates: start: 20030823, end: 20040926

REACTIONS (6)
  - DIZZINESS [None]
  - INFLUENZA LIKE ILLNESS [None]
  - MALAISE [None]
  - NAUSEA [None]
  - TINNITUS [None]
  - VERTIGO [None]
